FAERS Safety Report 10370825 (Version 1)
Quarter: 2014Q1

REPORT INFORMATION
  Report Type: Spontaneous
  Country: US (occurrence: None)
  Receive Date: 20140306
  Receipt Date: 20140306
  Transmission Date: 20141002
  Serious: Yes (Other)
  Sender: FDA-Public Use
  Company Number: 163-21880-13080961

PATIENT
  Age: 58 Year
  Sex: Male
  Weight: 93 kg

DRUGS (5)
  1. REVLIMID (LENALIDOMIDE) (10 MILLIGRAM, CAPSULES) [Suspect]
     Indication: PLASMA CELL MYELOMA
     Route: 048
     Dates: start: 201009
  2. COUMADIN (WARFARIN SODIUM) (TABLETS) [Concomitant]
  3. AMIODARONE HCL  (AMIODARONE HYDROCHLORIDE) (TABLETS) [Concomitant]
  4. DIGOXIN (TABLETS) [Concomitant]
  5. PLAVIX (CLOPIDOGREL SULFATE) (TABLETS) [Concomitant]

REACTIONS (3)
  - Atrial fibrillation [None]
  - Fatigue [None]
  - Hypotension [None]
